FAERS Safety Report 12207746 (Version 2)
Quarter: 2016Q2

REPORT INFORMATION
  Report Type: Spontaneous
  Country: US (occurrence: US)
  Receive Date: 20160324
  Receipt Date: 20160602
  Transmission Date: 20160815
  Serious: No
  Sender: FDA-Public Use
  Company Number: US-B.I. PHARMACEUTICALS,INC./RIDGEFIELD-2016-BI-13660BP

PATIENT
  Age: 61 Year
  Sex: Male
  Weight: 109 kg

DRUGS (6)
  1. GABAPENTIN. [Concomitant]
     Active Substance: GABAPENTIN
     Indication: RESTLESS LEGS SYNDROME
     Route: 065
     Dates: start: 20160128
  2. PARCOPA [Concomitant]
     Active Substance: CARBIDOPA\LEVODOPA
     Indication: RESTLESS LEGS SYNDROME
     Dosage: 25/100
     Route: 048
     Dates: start: 20140804
  3. MIRAPEX [Suspect]
     Active Substance: PRAMIPEXOLE DIHYDROCHLORIDE
     Indication: RESTLESS LEGS SYNDROME
     Dosage: 2 MG
     Route: 048
     Dates: start: 2008, end: 20160107
  4. MIRAPEX [Suspect]
     Active Substance: PRAMIPEXOLE DIHYDROCHLORIDE
     Dosage: 2 MG
     Route: 048
     Dates: start: 2015, end: 201601
  5. CRESTOR [Concomitant]
     Active Substance: ROSUVASTATIN CALCIUM
     Indication: BLOOD CHOLESTEROL INCREASED
     Route: 065
     Dates: end: 20160107
  6. MIRAPEX [Suspect]
     Active Substance: PRAMIPEXOLE DIHYDROCHLORIDE
     Dosage: 2 MG
     Route: 048
     Dates: start: 20140804, end: 20160107

REACTIONS (12)
  - Gambling [Recovered/Resolved]
  - Compulsions [Recovered/Resolved]
  - Compulsive sexual behaviour [Recovered/Resolved]
  - Incorrect dose administered [Recovered/Resolved]
  - Compulsive shopping [Recovered/Resolved]
  - Screaming [Recovered/Resolved]
  - Crying [Recovered/Resolved]
  - Irritability [Recovered/Resolved]
  - Sleep disorder [Recovered/Resolved]
  - Compulsive shopping [Recovered/Resolved]
  - Agitation [Recovered/Resolved]
  - Personality disorder [Recovered/Resolved]

NARRATIVE: CASE EVENT DATE: 2015
